FAERS Safety Report 24877628 (Version 2)
Quarter: 2025Q1

REPORT INFORMATION
  Report Type: Spontaneous
  Country: JP (occurrence: JP)
  Receive Date: 20250123
  Receipt Date: 20250130
  Transmission Date: 20250408
  Serious: Yes (Hospitalization, Other)
  Sender: NOVARTIS
  Company Number: JP-002147023-NVSJ2025JP000970

PATIENT
  Age: 29 Year
  Sex: Female

DRUGS (2)
  1. CYCLOSPORINE [Suspect]
     Active Substance: CYCLOSPORINE
     Indication: Aplastic anaemia
     Route: 065
  2. ECULIZUMAB [Suspect]
     Active Substance: ECULIZUMAB
     Indication: Thrombosis prophylaxis
     Route: 065

REACTIONS (10)
  - Pre-eclampsia [Unknown]
  - Generalised oedema [Unknown]
  - Scintillating scotoma [Unknown]
  - Platelet count decreased [Recovered/Resolved]
  - Hepatic enzyme abnormal [Unknown]
  - Renal impairment [Unknown]
  - Premature delivery [Unknown]
  - Placental infarction [Unknown]
  - Placental disorder [Unknown]
  - Maternal exposure during pregnancy [Unknown]
